FAERS Safety Report 10355283 (Version 4)
Quarter: 2014Q4

REPORT INFORMATION
  Report Type: Other
  Country: US (occurrence: US)
  Receive Date: 20140731
  Receipt Date: 20141113
  Transmission Date: 20150528
  Serious: Yes (Death, Other)
  Sender: FDA-Public Use
  Company Number: US-ACORDA-ACO_105159_2014

PATIENT
  Age: 73 Year
  Sex: Male

DRUGS (1)
  1. AMPYRA [Suspect]
     Active Substance: DALFAMPRIDINE
     Indication: PRODUCT USED FOR UNKNOWN INDICATION
     Dosage: 10 MG, Q 12 HRS
     Route: 048
     Dates: start: 20131003, end: 20140704

REACTIONS (2)
  - Multiple sclerosis [Unknown]
  - Death [Fatal]

NARRATIVE: CASE EVENT DATE: 20140704
